FAERS Safety Report 21927713 (Version 2)
Quarter: 2023Q1

REPORT INFORMATION
  Report Type: Spontaneous
  Country: US (occurrence: US)
  Receive Date: 20230130
  Receipt Date: 20230302
  Transmission Date: 20230417
  Serious: Yes (Other)
  Sender: FDA-Public Use
  Company Number: US-PFIZER INC-PV202300015961

PATIENT
  Age: 76 Year
  Sex: Male

DRUGS (2)
  1. MORPHINE SULFATE [Suspect]
     Active Substance: MORPHINE SULFATE
     Dosage: UNK
  2. BRAFTOVI [Concomitant]
     Active Substance: ENCORAFENIB
     Dosage: 75 MG
     Dates: start: 20230123

REACTIONS (4)
  - Exostosis of jaw [Unknown]
  - Rash pruritic [Unknown]
  - Dry skin [Unknown]
  - Pain [Unknown]
